FAERS Safety Report 9515426 (Version 1)
Quarter: 2013Q3

REPORT INFORMATION
  Report Type: Spontaneous
  Country: GB (occurrence: None)
  Receive Date: 20130909
  Receipt Date: 20130909
  Transmission Date: 20140515
  Serious: Yes (Other)
  Sender: FDA-Public Use
  Company Number: AUR-APL-2013-07298

PATIENT
  Age: 76 Year
  Sex: Female
  Weight: 58.1 kg

DRUGS (15)
  1. FLUCONAZOLE [Suspect]
     Indication: PRODUCT USED FOR UNKNOWN INDICATION
     Dates: start: 20130812
  2. ADALAT (NIFEDIPINE) [Concomitant]
  3. ALENDRONIC ACID (ALENDRONIC ACID) [Concomitant]
  4. AMOXICILLIN (AMOXICILLIN) [Concomitant]
  5. BENDROFLUMETHIAZIDE (BENDROFLUMETHIAZIDE) [Concomitant]
  6. CALCIUM CARBONATE (CALCIUM CARBONATE) [Concomitant]
  7. FOLIC ACID (FOLIC ACID) [Concomitant]
  8. IBUPROFEN (IBUPROFEN) [Concomitant]
  9. LOPERAMIDE (LOPERAMIDE) [Concomitant]
  10. METHOTREXATE (METHOTREXATE) [Concomitant]
  11. NYSTAN (NYSTATIN) [Concomitant]
  12. OXYBUTYNIN (OXYBUTYNIN) [Concomitant]
  13. PARACETAMOL (PARACETAMOL) [Concomitant]
  14. TRAMADOL (TRAMADOL) [Concomitant]
  15. VITAMIN B COMPLEX (VITAMIN B COMPLEX) [Concomitant]

REACTIONS (2)
  - Headache [None]
  - Erythema [None]
